FAERS Safety Report 25363941 (Version 5)
Quarter: 2025Q4

REPORT INFORMATION
  Report Type: Report from Study
  Country: JP (occurrence: JP)
  Receive Date: 20250527
  Receipt Date: 20251114
  Transmission Date: 20260117
  Serious: Yes (Hospitalization, Disabling, Other)
  Sender: TAKEDA
  Company Number: JP-teijin-202502046_FE_P_1

PATIENT
  Age: 9 Year
  Sex: Male
  Weight: 20.5 kg

DRUGS (10)
  1. FEBUXOSTAT [Suspect]
     Active Substance: FEBUXOSTAT
     Indication: Hyperuricaemia
     Dosage: 5 MILLIGRAM, QD
     Dates: end: 20250701
  2. PREDNISOLONE [Concomitant]
     Active Substance: PREDNISOLONE
     Indication: Renal transplant
     Dosage: 3 MILLIGRAM, QD
  3. PROGRAF [Concomitant]
     Active Substance: TACROLIMUS
     Indication: Renal transplant
     Dosage: 1.4 MILLIGRAM, BID
  4. BIO-THREE [Concomitant]
     Active Substance: HERBALS
     Indication: Diarrhoea
     Dosage: 0.5 GRAM, QD
  5. MIZORIBINE [Concomitant]
     Active Substance: MIZORIBINE
     Indication: Renal transplant
     Dosage: 100 MILLIGRAM, QD
  6. CALCIUM CARBONATE [Concomitant]
     Active Substance: CALCIUM CARBONATE
     Indication: Hyperphosphataemia
     Dosage: 500 MILLIGRAM, BID
  7. SULFAMETHOXAZOLE\TRIMETHOPRIM [Concomitant]
     Active Substance: SULFAMETHOXAZOLE\TRIMETHOPRIM
     Indication: Pneumocystis jirovecii pneumonia
     Dosage: 0.6 GRAM, 3/WEEK
  8. LANTHANUM CARBONATE [Concomitant]
     Active Substance: LANTHANUM CARBONATE
     Indication: Hyperphosphataemia
     Dosage: 375 MILLIGRAM, BID
  9. DARBEPOETIN ALFA [Concomitant]
     Active Substance: DARBEPOETIN ALFA
     Indication: Nephrogenic anaemia
     Dosage: 80 MICROGRAM, MONTHLY
  10. GENOTROPIN [Concomitant]
     Active Substance: SOMATROPIN
     Indication: Short stature
     Dosage: 1.05 MILLIGRAM, QD

REACTIONS (4)
  - Renal impairment [Recovered/Resolved]
  - Nephrogenic anaemia [Recovered/Resolved]
  - Neutropenia [Recovered/Resolved]
  - Product administered to patient of inappropriate age [Unknown]

NARRATIVE: CASE EVENT DATE: 20250116
